FAERS Safety Report 5140985-1 (Version None)
Quarter: 2006Q4

REPORT INFORMATION
  Report Type: 
  Country: None (occurrence: None)
  Receive Date: 20061027
  Receipt Date: 20061027
  Transmission Date: 20070319
  Serious: Yes (Hospitalization)
  Sender: FDA-Public Use
  Company Number: None

PATIENT
  Age: 59 Year
  Sex: Male

DRUGS (23)
  1. ALDACTONE [Suspect]
     Indication: CARDIAC FAILURE CONGESTIVE
     Dosage: 100MG PO QD
     Route: 048
     Dates: start: 20050823, end: 20060926
  2. LISINOPRIL [Suspect]
     Indication: CARDIAC FAILURE CONGESTIVE
     Dosage: 40MG/DAY
     Dates: start: 20060225, end: 20060926
  3. LISINOPRIL [Suspect]
     Indication: HYPERTENSION
     Dosage: 40MG/DAY
     Dates: start: 20060225, end: 20060926
  4. ASPIRIN ENTERIV COATED [Concomitant]
  5. ATENOLOL [Concomitant]
  6. FELODIPINE SA [Concomitant]
  7. FLUNISOLIDE [Concomitant]
  8. FOLIC ACID [Concomitant]
  9. LACRILUBE [Concomitant]
  10. LISINOPRIL [Concomitant]
  11. MULTIVITAMIN W/MINERALS [Concomitant]
  12. POLYVINYL ALCOHOL [Concomitant]
  13. OPHTH SOLN [Concomitant]
  14. OXYBUTYNIN CHLORIDE [Concomitant]
  15. POTASSIUM CHLORIDE [Concomitant]
  16. RANITIDINE HCL [Concomitant]
  17. RISPERIDONE [Concomitant]
  18. SERTRALINE HCL [Concomitant]
  19. SPIRONOLACTONE [Concomitant]
  20. TERAZOSIN HCL [Concomitant]
  21. THIAMINE [Concomitant]
  22. SIMVASTATIN [Concomitant]
  23. TRAZODONE HCL [Concomitant]

REACTIONS (11)
  - CHEST PAIN [None]
  - DIALYSIS [None]
  - DIZZINESS [None]
  - DYSPNOEA [None]
  - ELECTROCARDIOGRAM ABNORMAL [None]
  - GENERAL PHYSICAL HEALTH DETERIORATION [None]
  - HYPERKALAEMIA [None]
  - HYPOTENSION [None]
  - RENAL FAILURE ACUTE [None]
  - RESPIRATORY FAILURE [None]
  - TACHYCARDIA [None]
